FAERS Safety Report 9683947 (Version 2)
Quarter: 2013Q4

REPORT INFORMATION
  Report Type: Spontaneous
  Country: DE (occurrence: DE)
  Receive Date: 20131112
  Receipt Date: 20131112
  Transmission Date: 20140711
  Serious: Yes (Disabling, Other)
  Sender: FDA-Public Use
  Company Number: DE-ASTRAZENECA-2013SE78210

PATIENT
  Age: 377 Month
  Sex: Female
  Weight: 64 kg

DRUGS (2)
  1. ZOLADEX [Suspect]
     Indication: BREAST CANCER FEMALE
     Route: 058
     Dates: start: 20070808
  2. FEMARA [Suspect]
     Indication: BREAST CANCER FEMALE
     Route: 048
     Dates: start: 20070808

REACTIONS (4)
  - Myalgia [Not Recovered/Not Resolved]
  - Muscular weakness [Not Recovered/Not Resolved]
  - Arthralgia [Not Recovered/Not Resolved]
  - Off label use [Unknown]
